FAERS Safety Report 7253491-5 (Version None)
Quarter: 2011Q1

REPORT INFORMATION
  Report Type: 
  Country: None (occurrence: None)
  Receive Date: 20110129
  Receipt Date: 20100329
  Transmission Date: 20110831
  Serious: Yes (Hospitalization)
  Sender: FDA-Public Use
  Company Number: US-ABBOTT-10P-163-0634488-00

PATIENT
  Sex: Female
  Weight: 72.186 kg

DRUGS (1)
  1. HUMIRA [Suspect]
     Indication: CROHN'S DISEASE
     Route: 058
     Dates: start: 20100217

REACTIONS (9)
  - DEHYDRATION [None]
  - CONTUSION [None]
  - JOINT LOCK [None]
  - BLOOD GLUCOSE INCREASED [None]
  - DIARRHOEA [None]
  - NAUSEA [None]
  - CROHN'S DISEASE [None]
  - ARTHRALGIA [None]
  - DRUG DOSE OMISSION [None]
